FAERS Safety Report 8459185-2 (Version None)
Quarter: 2012Q2

REPORT INFORMATION
  Report Type: 
  Country: None (occurrence: None)
  Receive Date: 20120622
  Receipt Date: 20120613
  Transmission Date: 20120825
  Serious: Yes (Death)
  Sender: FDA-Public Use
  Company Number: TN-SANOFI-AVENTIS-2012SA042509

PATIENT
  Age: 48 Year
  Sex: Female

DRUGS (11)
  1. PLAVIX [Suspect]
     Route: 048
     Dates: start: 20111005, end: 20120506
  2. PROCRIT [Concomitant]
     Route: 048
     Dates: end: 20120506
  3. ASPEGIC 1000 [Concomitant]
     Route: 048
     Dates: end: 20120506
  4. CRESTOR [Concomitant]
     Route: 048
     Dates: end: 20120506
  5. CORVASAL [Concomitant]
     Route: 048
     Dates: end: 20120506
  6. VENOFER [Concomitant]
     Route: 048
     Dates: end: 20120506
  7. PLAVIX [Suspect]
     Indication: STENT PLACEMENT
     Route: 048
     Dates: start: 20111005, end: 20120506
  8. LASIX [Concomitant]
     Route: 048
     Dates: end: 20120506
  9. AMLODIPINE BESYLATE [Concomitant]
     Route: 048
     Dates: end: 20120506
  10. INSULATARD NPH HUMAN [Concomitant]
     Route: 048
     Dates: end: 20120506
  11. CALPEROS [Concomitant]
     Route: 048
     Dates: end: 20120506

REACTIONS (2)
  - DYSPNOEA [None]
  - CHEST PAIN [None]
